FAERS Safety Report 5323285-6 (Version None)
Quarter: 2007Q2

REPORT INFORMATION
  Report Type: 
  Country: None (occurrence: None)
  Receive Date: 20070220
  Receipt Date: 20061129
  Transmission Date: 20071010
  Serious: No
  Sender: FDA-Public Use
  Company Number: WAES 0611USA07524

PATIENT
  Age: 55 Year
  Sex: 0

DRUGS (4)
  1. JANUVIA [Suspect]
     Dosage: PO
     Route: 048
  2. AVANDAMET [Concomitant]
  3. LIPITOR [Concomitant]
  4. ASPIRIN [Concomitant]

REACTIONS (1)
  - FATIGUE [None]
